FAERS Safety Report 18121618 (Version 1)
Quarter: 2020Q3

REPORT INFORMATION
  Report Type: Spontaneous
  Country: US (occurrence: US)
  Receive Date: 20200806
  Receipt Date: 20200806
  Transmission Date: 20201103
  Serious: No
  Sender: FDA-Public Use
  Company Number: US-IGSA-SR10010002

PATIENT
  Age: 42 Year
  Sex: Female

DRUGS (7)
  1. PROMETHAZINE                       /00033002/ [Concomitant]
     Active Substance: PROMETHAZINE HYDROCHLORIDE
     Indication: PREMEDICATION
  2. HUMAN NORMAL IMMUNOGLOBULIN (IV) [Suspect]
     Active Substance: HUMAN IMMUNOGLOBULIN G
     Dosage: 2000 MG/KG, PER CYCLE
     Route: 042
  3. PREDNISONE                         /00044702/ [Concomitant]
     Active Substance: PREDNISONE
     Indication: URTICARIA PRESSURE
     Dosage: UNK UNK, Q.3M.
     Route: 048
  4. HUMAN NORMAL IMMUNOGLOBULIN (IV) [Suspect]
     Active Substance: HUMAN IMMUNOGLOBULIN G
     Indication: URTICARIA PRESSURE
     Dosage: 1000 MG/KG, Q.3M.
     Route: 042
  5. MEPERIDINE                         /00016301/ [Concomitant]
     Active Substance: MEPERIDINE
     Indication: PREMEDICATION
  6. HYDROCODONE/PARACETAMOL [Concomitant]
     Active Substance: ACETAMINOPHEN\HYDROCODONE BITARTRATE
     Indication: PREMEDICATION
  7. HYDROCODONE/PARACETAMOL [Concomitant]
     Active Substance: ACETAMINOPHEN\HYDROCODONE BITARTRATE
     Indication: HEADACHE

REACTIONS (2)
  - Exposure during pregnancy [None]
  - Headache [Recovered/Resolved]
